FAERS Safety Report 9817909 (Version 4)
Quarter: 2014Q1

REPORT INFORMATION
  Report Type: Spontaneous
  Country: US (occurrence: US)
  Receive Date: 20140115
  Receipt Date: 20140311
  Transmission Date: 20141002
  Serious: Yes (Life-Threatening, Hospitalization, Other)
  Sender: FDA-Public Use
  Company Number: US-MERCK-1401USA004783

PATIENT
  Sex: Female
  Weight: 102.95 kg

DRUGS (6)
  1. JANUVIA [Suspect]
     Indication: TYPE 2 DIABETES MELLITUS
     Dosage: 1/2 TABLET, QD
     Route: 048
     Dates: start: 20070525
  2. JANUVIA [Suspect]
     Dosage: 100 MG, QD
     Route: 048
     Dates: start: 20070926, end: 20111207
  3. METFORMIN [Concomitant]
     Indication: TYPE 2 DIABETES MELLITUS
     Dosage: 1000 MG, BID
  4. GLIPIZIDE [Concomitant]
     Indication: TYPE 2 DIABETES MELLITUS
     Dosage: 20 DF, QD
  5. ALTACE [Concomitant]
     Indication: HYPERTENSION
     Dosage: 10 MG, QD
     Route: 048
  6. SIMVASTATIN [Concomitant]
     Indication: LOW DENSITY LIPOPROTEIN INCREASED
     Dosage: 20 MG, QD
     Dates: start: 20110926

REACTIONS (19)
  - Pancreatic neuroendocrine tumour [Unknown]
  - Pancreatectomy [Unknown]
  - Splenectomy [Unknown]
  - Pancreatic mass [Unknown]
  - Lymphadenopathy [Unknown]
  - Diverticulum [Unknown]
  - Atelectasis [Unknown]
  - Splenic vein thrombosis [Unknown]
  - Leukocytosis [Unknown]
  - Anxiety [Unknown]
  - Diabetes mellitus inadequate control [Unknown]
  - Incisional hernia [Unknown]
  - Portal vein thrombosis [Unknown]
  - Vena cava thrombosis [Unknown]
  - Pelvic venous thrombosis [Unknown]
  - Gastrooesophageal reflux disease [Unknown]
  - Osteoarthritis [Unknown]
  - Breast lump removal [Unknown]
  - Arthralgia [Unknown]
